FAERS Safety Report 23367018 (Version 2)
Quarter: 2025Q3

REPORT INFORMATION
  Report Type: Spontaneous
  Country: US (occurrence: US)
  Receive Date: 20240104
  Receipt Date: 20250911
  Transmission Date: 20251020
  Serious: Yes (Other)
  Sender: RANBAXY
  Company Number: US-SUN PHARMACEUTICAL INDUSTRIES LTD-2023R1-426052

PATIENT
  Age: 37 Year
  Sex: Female

DRUGS (2)
  1. TRIAMCINOLONE [Suspect]
     Active Substance: TRIAMCINOLONE
     Indication: Papule
     Route: 065
  2. AZELAIC ACID [Suspect]
     Active Substance: AZELAIC ACID
     Indication: Dermatitis acneiform
     Route: 065

REACTIONS (1)
  - Disease progression [Unknown]
